FAERS Safety Report 24230360 (Version 1)
Quarter: 2024Q3

REPORT INFORMATION
  Report Type: Spontaneous
  Country: CN (occurrence: CN)
  Receive Date: 20240821
  Receipt Date: 20240821
  Transmission Date: 20241017
  Serious: Yes (Other)
  Sender: STRIDES
  Company Number: CN-STRIDES ARCOLAB LIMITED-2024SP010376

PATIENT
  Age: 76 Year
  Sex: Female

DRUGS (7)
  1. PREDNISOLONE [Suspect]
     Active Substance: PREDNISOLONE
     Indication: Mantle cell lymphoma
     Dosage: 40 MILLIGRAM/SQ. METER, QD (RECEIVED ON DAYS?2-6)
     Route: 048
  2. ORELABRUTINIB [Suspect]
     Active Substance: ORELABRUTINIB
     Indication: Mantle cell lymphoma
     Dosage: 150 MILLIGRAM, QD
     Route: 048
  3. LENALIDOMIDE [Suspect]
     Active Substance: LENALIDOMIDE
     Indication: Mantle cell lymphoma
     Dosage: 25 MILLIGRAM, QD (RECEIVED ON DAYS?2-8)
     Route: 065
  4. RITUXIMAB [Suspect]
     Active Substance: RITUXIMAB
     Indication: Mantle cell lymphoma
     Dosage: 375 MILLIGRAM/SQ. METER (RECEIVED ONCE ON DAY?1)
     Route: 042
  5. DOXORUBICIN [Suspect]
     Active Substance: DOXORUBICIN
     Indication: Mantle cell lymphoma
     Dosage: 25 MILLIGRAM/SQ. METER (RECEIVED ONCE ON DAY?2)
     Route: 065
  6. CYCLOPHOSPHAMIDE [Suspect]
     Active Substance: CYCLOPHOSPHAMIDE
     Indication: Mantle cell lymphoma
     Dosage: 400 MILLIGRAM/SQ. METER (RECEIVED ONCE ON DAY?2)
     Route: 065
  7. VINDESINE [Suspect]
     Active Substance: VINDESINE
     Indication: Mantle cell lymphoma
     Dosage: 2.5 MILLIGRAM/SQ. METER (RECEIVED ONCE ON DAY?2)
     Route: 065

REACTIONS (4)
  - Thrombocytopenia [Unknown]
  - Hypokalaemia [Unknown]
  - Pneumonia [Unknown]
  - Anaemia [Unknown]
